FAERS Safety Report 24571285 (Version 2)
Quarter: 2024Q4

REPORT INFORMATION
  Report Type: Spontaneous
  Country: JP (occurrence: JP)
  Receive Date: 20241101
  Receipt Date: 20241216
  Transmission Date: 20250115
  Serious: Yes (Death, Life-Threatening, Hospitalization, Other)
  Sender: GLAXOSMITHKLINE
  Company Number: None

PATIENT

DRUGS (6)
  1. MOMELOTINIB [Suspect]
     Active Substance: MOMELOTINIB
     Indication: Myelofibrosis
     Dosage: 200 MG, QD
     Route: 048
     Dates: start: 20241003
  2. SULFAMETHOXAZOLE\TRIMETHOPRIM [Concomitant]
     Active Substance: SULFAMETHOXAZOLE\TRIMETHOPRIM
     Dosage: UNK
  3. ALDIOXA [Concomitant]
     Active Substance: ALDIOXA
     Dosage: UNK
  4. DEXTROMETHORPHAN HYDROBROMIDE [Concomitant]
     Active Substance: DEXTROMETHORPHAN HYDROBROMIDE
     Dosage: UNK
  5. CARBOCYSTEINE [Concomitant]
     Active Substance: CARBOCYSTEINE
     Dosage: UNK
  6. EDOXABAN TOSYLATE [Concomitant]
     Active Substance: EDOXABAN TOSYLATE
     Dosage: UNK

REACTIONS (4)
  - Pneumonia aspiration [Fatal]
  - Platelet count decreased [Recovered/Resolved]
  - Coronavirus infection [Recovered/Resolved]
  - Dysphagia [Recovered/Resolved]

NARRATIVE: CASE EVENT DATE: 20241003
